FAERS Safety Report 9941477 (Version 1)
Quarter: 2014Q1

REPORT INFORMATION
  Report Type: Report from Study
  Country: US (occurrence: US)
  Receive Date: 20140303
  Receipt Date: 20140303
  Transmission Date: 20141002
  Serious: No
  Sender: FDA-Public Use
  Company Number: US-ABBVIE-13P-163-1039413-00

PATIENT
  Age: 22 Year
  Sex: Female

DRUGS (9)
  1. HUMIRA [Suspect]
     Indication: CROHN^S DISEASE
     Dates: start: 20130110
  2. WELLBUTRIN [Concomitant]
     Indication: PRODUCT USED FOR UNKNOWN INDICATION
  3. SEASONALE [Concomitant]
     Indication: PRODUCT USED FOR UNKNOWN INDICATION
     Dosage: DAILY
  4. NEXIUM [Concomitant]
     Indication: PRODUCT USED FOR UNKNOWN INDICATION
  5. APRISO [Concomitant]
     Indication: PRODUCT USED FOR UNKNOWN INDICATION
  6. SEROQUEL [Concomitant]
     Indication: PRODUCT USED FOR UNKNOWN INDICATION
     Dosage: 300 MG, AT BEDTIME
  7. KLONOPIN [Concomitant]
     Indication: PANIC ATTACK
     Dosage: 1-2 AT BEDTIME OR AT PANIC ATTACK
  8. DEPAKOTE [Concomitant]
     Indication: PRODUCT USED FOR UNKNOWN INDICATION
     Dosage: 1000 MG, AT BEDTIME
  9. ALSUMA [Concomitant]
     Indication: MIGRAINE
     Dosage: 6 MG AT ONSET OF MIGRAINE MAY INJECT ANOTHER 6 MG AFTER 2 HOURS IF MIGRAINE PERSIST

REACTIONS (1)
  - Injection site rash [Recovering/Resolving]
